FAERS Safety Report 4784146-4 (Version None)
Quarter: 2005Q3

REPORT INFORMATION
  Report Type: 
  Country: None (occurrence: None)
  Receive Date: 20050930
  Receipt Date: 20050722
  Transmission Date: 20060218
  Serious: No
  Sender: FDA-Public Use
  Company Number: US-GLAXOSMITHKLINE-A0567278A

PATIENT
  Age: 73 Year
  Sex: Male

DRUGS (4)
  1. FLOVENT [Suspect]
     Indication: ASTHMA
     Dosage: 2PUFF TWICE PER DAY
     Route: 055
     Dates: start: 20050501
  2. ALBUTEROL [Concomitant]
  3. INDOMETHACIN [Concomitant]
  4. LISINOPRIL [Concomitant]

REACTIONS (1)
  - ABDOMINAL PAIN [None]
